FAERS Safety Report 13520899 (Version 1)
Quarter: 2017Q2

REPORT INFORMATION
  Report Type: Spontaneous
  Country: US (occurrence: US)
  Receive Date: 20170508
  Receipt Date: 20170508
  Transmission Date: 20170830
  Serious: No
  Sender: FDA-Public Use
  Company Number: US-TEVA-727610ACC

PATIENT
  Sex: Female

DRUGS (1)
  1. ENPRESSE [Suspect]
     Active Substance: ETHINYL ESTRADIOL\LEVONORGESTREL
     Dosage: DOSE STRENGTH: 0.125 MG/0.030 MG

REACTIONS (4)
  - Mood swings [Unknown]
  - Wrong technique in product usage process [Unknown]
  - Menstruation delayed [Unknown]
  - Vaginal haemorrhage [Unknown]
